FAERS Safety Report 14470341 (Version 2)
Quarter: 2018Q1

REPORT INFORMATION
  Report Type: Spontaneous
  Country: AE (occurrence: AE)
  Receive Date: 20180131
  Receipt Date: 20180223
  Transmission Date: 20180509
  Serious: Yes (Hospitalization, Other)
  Sender: FDA-Public Use
  Company Number: AE-AMGEN-ARESP2018012838

PATIENT
  Age: 40 Year
  Sex: Male
  Weight: 75 kg

DRUGS (1)
  1. BLINCYTO [Suspect]
     Active Substance: BLINATUMOMAB
     Indication: ACUTE LYMPHOCYTIC LEUKAEMIA RECURRENT
     Dosage: 28 MCG, QD
     Route: 042
     Dates: start: 20171116, end: 20180125

REACTIONS (4)
  - Acute lymphocytic leukaemia recurrent [Not Recovered/Not Resolved]
  - Night sweats [Recovered/Resolved]
  - Cytokine release syndrome [Recovered/Resolved]
  - Pyrexia [Recovered/Resolved]

NARRATIVE: CASE EVENT DATE: 20171117
